FAERS Safety Report 5129058-1 (Version None)
Quarter: 2006Q4

REPORT INFORMATION
  Report Type: 
  Country: None (occurrence: None)
  Receive Date: 20061011
  Receipt Date: 20060925
  Transmission Date: 20070319
  Serious: Yes (Hospitalization)
  Sender: FDA-Public Use
  Company Number: 2006US002116

PATIENT
  Age: 48 Year
  Sex: Male
  Weight: 116 kg

DRUGS (7)
  1. PROGRAF [Suspect]
     Indication: PROPHYLAXIS AGAINST TRANSPLANT REJECTION
     Dosage: SEE IMAGE
     Route: 048
     Dates: start: 20060403, end: 20060910
  2. PROGRAF [Suspect]
     Indication: PROPHYLAXIS AGAINST TRANSPLANT REJECTION
     Dosage: SEE IMAGE
     Route: 048
     Dates: start: 20060911, end: 20060911
  3. PROGRAF [Suspect]
     Indication: PROPHYLAXIS AGAINST TRANSPLANT REJECTION
     Dosage: SEE IMAGE
     Route: 048
     Dates: start: 20051225
  4. MYFORTIC (MYCOPHENOLATE SODIUM) [Concomitant]
  5. ATORVASTATIN CALCIUM [Concomitant]
  6. ATENOLOL [Concomitant]
  7. ASPIRIN [Concomitant]

REACTIONS (3)
  - GENERAL PHYSICAL HEALTH DETERIORATION [None]
  - RESPIRATORY DISORDER [None]
  - WEST NILE VIRAL INFECTION [None]
